FAERS Safety Report 5818665-6 (Version None)
Quarter: 2008Q3

REPORT INFORMATION
  Report Type: 
  Country: None (occurrence: None)
  Receive Date: 20080721
  Receipt Date: 20080721
  Transmission Date: 20090109
  Serious: Yes (Other)
  Sender: FDA-Public Use
  Company Number: None

PATIENT
  Age: 67 Year
  Sex: Female
  Weight: 83.9154 kg

DRUGS (9)
  1. BYETTA [Suspect]
     Indication: TYPE 2 DIABETES MELLITUS
     Dosage: 10 MG AM AND PM SQ
     Route: 058
     Dates: start: 20061130, end: 20080509
  2. GLYBURIDE [Concomitant]
  3. LEXAPRO [Concomitant]
  4. METFORMIN HCL [Concomitant]
  5. METOPROLOL TARTRATE [Concomitant]
  6. SYNTHROID [Concomitant]
  7. LISINOPRIL [Concomitant]
  8. HYDROCHLOROTHIAZIDE [Concomitant]
  9. LIPITOR [Concomitant]

REACTIONS (4)
  - DIARRHOEA [None]
  - NAUSEA [None]
  - SOMNOLENCE [None]
  - VOMITING [None]
